FAERS Safety Report 11883627 (Version 5)
Quarter: 2016Q2

REPORT INFORMATION
  Report Type: Spontaneous
  Country: ES (occurrence: ES)
  Receive Date: 20160101
  Receipt Date: 20160518
  Transmission Date: 20160815
  Serious: Yes (Other)
  Sender: FDA-Public Use
  Company Number: ES-AMGEN-ESPSP2015131982

PATIENT
  Age: 44 Year
  Sex: Female

DRUGS (11)
  1. DELTIUS [Concomitant]
     Indication: BONE DISORDER
     Dosage: 1 DF, WEEKLY
  2. CELEBREX [Concomitant]
     Active Substance: CELECOXIB
     Indication: RHEUMATOID ARTHRITIS
     Dosage: 200 MG, AS NEEDED (ONE CAPSULE OF 200 MG AS NEEDED)
  3. NOLOTIL [Concomitant]
     Active Substance: METAMIZOLE
     Indication: RHEUMATOID ARTHRITIS
     Dosage: 1 DF, 1X/DAY (ONE TABLET EVERY 24 HOURS)
  4. NOLOTIL [Concomitant]
     Active Substance: METAMIZOLE
     Indication: RHEUMATOID ARTHRITIS
     Dosage: 1 DF, 1X/DAY (ONE TABLET EVERY 24 HOURS)
  5. METOJECT [Concomitant]
     Active Substance: METHOTREXATE SODIUM
     Indication: RHEUMATOID ARTHRITIS
     Dosage: 25 MG, WEEKLY (ONE VIAL OF 25 MG WEEKLY)
  6. PREDNISONE. [Concomitant]
     Active Substance: PREDNISONE
     Dosage: 30 MG, EVERY 4 DAYS (ONE TABLET OF 30 MG EVERY 4 DAYS)
  7. PREDNISONE. [Concomitant]
     Active Substance: PREDNISONE
     Dosage: 7.5 MG, UNK (7.5 MG EVERY 48 HOURS)
  8. ENBREL [Suspect]
     Active Substance: ETANERCEPT
     Indication: RHEUMATOID ARTHRITIS
     Dosage: 50 MG, WEEKLY (ONE VIAL OF 50 MG, ON FRIDAYS)
     Route: 058
     Dates: start: 20151002
  9. NOLOTIL [Concomitant]
     Active Substance: METAMIZOLE
     Indication: RHEUMATOID ARTHRITIS
     Dosage: 1 DF, 1X/DAY (ONE TABLET EVERY 24 HOURS)
  10. PREDNISONE. [Concomitant]
     Active Substance: PREDNISONE
     Indication: RHEUMATOID ARTHRITIS
     Dosage: 5 MG, UNK
     Dates: start: 201512
  11. PREDNISONE. [Concomitant]
     Active Substance: PREDNISONE
     Dosage: 2.5 MG, 1X/DAY (ONE TABLET OF 2.5 MG EVERY 24 HOURS)

REACTIONS (7)
  - Injection site pain [Recovered/Resolved]
  - Arthralgia [Recovered/Resolved]
  - Condition aggravated [Recovered/Resolved]
  - Inflammation [Recovering/Resolving]
  - Rheumatoid arthritis [Recovered/Resolved]
  - Drug ineffective [Not Recovered/Not Resolved]
  - Musculoskeletal pain [Recovered/Resolved]

NARRATIVE: CASE EVENT DATE: 2015
